FAERS Safety Report 5376978-9 (Version None)
Quarter: 2007Q3

REPORT INFORMATION
  Report Type: 
  Country: None (occurrence: None)
  Receive Date: 20070703
  Receipt Date: 20070625
  Transmission Date: 20080115
  Serious: Yes (Congenital Anomaly, Other)
  Sender: FDA-Public Use
  Company Number: GB-AVENTIS-200715734GDDC

PATIENT
  Age: 28 Year
  Sex: Female

DRUGS (1)
  1. CLOMID [Suspect]
     Dosage: DOSE: UNK
     Route: 064

REACTIONS (1)
  - CONGENITAL ANOMALY [None]
